FAERS Safety Report 20795370 (Version 1)
Quarter: 2022Q2

REPORT INFORMATION
  Report Type: Spontaneous
  Country: US (occurrence: None)
  Receive Date: 20220505
  Receipt Date: 20220505
  Transmission Date: 20220721
  Serious: No
  Sender: FDA-Public Use
  Company Number: None

PATIENT
  Age: 69 Year
  Sex: Female

DRUGS (1)
  1. SYMBICORT [Suspect]
     Active Substance: BUDESONIDE\FORMOTEROL FUMARATE DIHYDRATE
     Indication: Asthma
     Dosage: FREQUENCY : TWICE A DAY;?
     Route: 048
     Dates: start: 20220502, end: 20220504

REACTIONS (2)
  - Bronchospasm paradoxical [None]
  - Paradoxical drug reaction [None]

NARRATIVE: CASE EVENT DATE: 20220502
